FAERS Safety Report 10436339 (Version 1)
Quarter: 2014Q3

REPORT INFORMATION
  Report Type: Spontaneous
  Country: CN (occurrence: CN)
  Receive Date: 20140908
  Receipt Date: 20140908
  Transmission Date: 20150326
  Serious: Yes (Other)
  Sender: FDA-Public Use
  Company Number: PHHY2014CN109688

PATIENT
  Age: 57 Year
  Sex: Male

DRUGS (1)
  1. TACROLIMUS. [Suspect]
     Active Substance: TACROLIMUS

REACTIONS (3)
  - Osmotic demyelination syndrome [Not Recovered/Not Resolved]
  - Neurotoxicity [Unknown]
  - Dizziness [Recovered/Resolved]
